FAERS Safety Report 7057971-7 (Version None)
Quarter: 2010Q4

REPORT INFORMATION
  Report Type: 
  Country: None (occurrence: None)
  Receive Date: 20101022
  Receipt Date: 20101019
  Transmission Date: 20110411
  Serious: No
  Sender: FDA-Public Use
  Company Number: JP-PFIZER INC-2010123794

PATIENT
  Age: 59 Year
  Sex: Female

DRUGS (6)
  1. NORVASC [Suspect]
     Indication: HYPERTENSION
     Dosage: 2.5 MG, 1X/DAY
     Route: 048
     Dates: start: 20030424, end: 20100107
  2. CANDESARTAN CILEXETIL [Concomitant]
     Indication: HYPERTENSION
     Dosage: 4 MG, 1X/DAY
     Route: 048
     Dates: start: 20010611
  3. ALCENOL [Concomitant]
     Indication: HYPERTENSION
     Dosage: 25 MG, 1X/DAY
     Route: 048
     Dates: start: 20010917
  4. LIPITOR [Concomitant]
     Indication: HYPERCHOLESTEROLAEMIA
     Dosage: UNK
     Route: 048
     Dates: start: 20050630
  5. GAMOFA [Concomitant]
     Indication: GASTRIC ULCER
     Dosage: 10 MG, 2X/DAY
     Route: 048
     Dates: start: 20040721
  6. 8-HOUR BAYER [Concomitant]
     Dosage: 100 MG, 1X/DAY
     Route: 048
     Dates: start: 20020328

REACTIONS (1)
  - GINGIVAL BLEEDING [None]
